FAERS Safety Report 6317492-3 (Version None)
Quarter: 2009Q3

REPORT INFORMATION
  Report Type: 
  Country: None (occurrence: None)
  Receive Date: 20090821
  Receipt Date: 20090817
  Transmission Date: 20100115
  Serious: Yes (Other)
  Sender: FDA-Public Use
  Company Number: US-JNJFOC-20090603928

PATIENT
  Sex: Female
  Weight: 77.8 kg

DRUGS (8)
  1. TOPAMAX [Suspect]
     Indication: MIGRAINE PROPHYLAXIS
     Route: 048
  2. VALIUM [Concomitant]
     Indication: FEELING OF RELAXATION
     Route: 048
  3. TENORMIN [Concomitant]
     Route: 065
  4. LIPITOR [Concomitant]
     Route: 065
  5. VERAPAMIL [Concomitant]
     Route: 065
  6. MODURETIC 5-50 [Concomitant]
     Dosage: 5/50 MG
     Route: 065
  7. KLOR-CON [Concomitant]
     Route: 065
  8. ASPIRIN [Concomitant]
     Dosage: 325 MG 2 TABS TID
     Route: 065

REACTIONS (2)
  - HALLUCINATION, VISUAL [None]
  - THERAPEUTIC RESPONSE UNEXPECTED [None]
